FAERS Safety Report 4700557-7 (Version None)
Quarter: 2005Q2

REPORT INFORMATION
  Report Type: 
  Country: None (occurrence: None)
  Receive Date: 20050627
  Receipt Date: 20050627
  Transmission Date: 20051028
  Serious: Yes (Other)
  Sender: FDA-Public Use
  Company Number: None

PATIENT
  Age: 80 Year
  Sex: Male
  Weight: 77.5651 kg

DRUGS (1)
  1. DILAUDID [Suspect]
     Indication: BACK PAIN
     Dosage: 0.5 MG IV Q 30 MIN
     Route: 042
     Dates: start: 20050613

REACTIONS (1)
  - SEDATION [None]
